FAERS Safety Report 10250726 (Version 1)
Quarter: 2014Q2

REPORT INFORMATION
  Report Type: Spontaneous
  Country: US (occurrence: US)
  Receive Date: 20140620
  Receipt Date: 20140620
  Transmission Date: 20141212
  Serious: Yes (Hospitalization, Other)
  Sender: FDA-Public Use
  Company Number: US-ELI_LILLY_AND_COMPANY-US201406003976

PATIENT
  Age: 21 Year
  Sex: Male

DRUGS (1)
  1. HUMALOG LISPRO [Suspect]
     Indication: PRODUCT USED FOR UNKNOWN INDICATION
     Route: 058

REACTIONS (4)
  - Blood glucose increased [Unknown]
  - Road traffic accident [Unknown]
  - Hypoglycaemic unconsciousness [Unknown]
  - Blood glucose decreased [Unknown]
